FAERS Safety Report 13879644 (Version 1)
Quarter: 2017Q3

REPORT INFORMATION
  Report Type: Spontaneous
  Country: US (occurrence: US)
  Receive Date: 20170814
  Receipt Date: 20170814
  Transmission Date: 20171127
  Serious: Yes (Other)
  Sender: FDA-Public Use
  Company Number: None

PATIENT
  Age: 59 Year
  Sex: Male
  Weight: 63 kg

DRUGS (6)
  1. GUMMY FIBER [Concomitant]
  2. GUMMY MULTI VITAMIN [Concomitant]
  3. EYLEA [Suspect]
     Active Substance: AFLIBERCEPT
     Indication: DIABETIC RETINAL OEDEMA
     Route: 047
     Dates: start: 20170109, end: 20170309
  4. NOVOLOG [Concomitant]
     Active Substance: INSULIN ASPART
  5. TRESIBA [Concomitant]
     Active Substance: INSULIN DEGLUDEC
  6. GUMMY PROBIOTIC [Concomitant]

REACTIONS (3)
  - Peripheral swelling [None]
  - Infection [None]
  - Blister [None]

NARRATIVE: CASE EVENT DATE: 20170130
